FAERS Safety Report 4394556-5 (Version None)
Quarter: 2004Q3

REPORT INFORMATION
  Report Type: 
  Country: None (occurrence: None)
  Receive Date: 20040712
  Receipt Date: 20040707
  Transmission Date: 20050211
  Serious: Yes (Life-Threatening)
  Sender: FDA-Public Use
  Company Number: US-BRISTOL-MYERS SQUIBB COMPANY-12634804

PATIENT
  Age: 31 Year
  Sex: Female
  Weight: 58 kg

DRUGS (4)
  1. STAVUDINE XR [Suspect]
     Indication: HIV INFECTION
     Dosage: ONCE DAILY
     Route: 048
     Dates: start: 20030917
  2. LOPINAVIR + RITONAVIR [Suspect]
     Indication: HIV INFECTION
     Dosage: DOSEAGE FORM: CAPSULE (133.3/333 MG)
     Route: 048
     Dates: start: 20030917
  3. LAMIVUDINE [Suspect]
     Indication: HIV INFECTION
     Dosage: ONCE DAILY
     Route: 048
     Dates: start: 20030917
  4. BACTRIM DS [Concomitant]

REACTIONS (1)
  - BLOOD CREATINE PHOSPHOKINASE INCREASED [None]
